FAERS Safety Report 22379587 (Version 1)
Quarter: 2023Q2

REPORT INFORMATION
  Report Type: Report from Study
  Country: DE (occurrence: DE)
  Receive Date: 20230529
  Receipt Date: 20230529
  Transmission Date: 20230722
  Serious: Yes (Other)
  Sender: FDA-Public Use
  Company Number: DE-JNJFOC-20230557386

PATIENT

DRUGS (1)
  1. IMBRUVICA [Suspect]
     Active Substance: IBRUTINIB
     Indication: Chronic lymphocytic leukaemia
     Route: 048

REACTIONS (7)
  - Atrial fibrillation [Unknown]
  - Myalgia [Unknown]
  - Drug intolerance [Unknown]
  - Hypertension [Unknown]
  - Adverse drug reaction [Unknown]
  - Cardiac amyloidosis [Unknown]
  - Arthralgia [Unknown]
